FAERS Safety Report 5827844-3 (Version None)
Quarter: 2008Q3

REPORT INFORMATION
  Report Type: 
  Country: None (occurrence: None)
  Receive Date: 20080728
  Receipt Date: 20080715
  Transmission Date: 20090109
  Serious: Yes (Other)
  Sender: FDA-Public Use
  Company Number: FABR-1000306

PATIENT
  Age: 43 Year
  Sex: Male
  Weight: 50 kg

DRUGS (8)
  1. FABRAZYME [Suspect]
     Indication: FABRY'S DISEASE
     Dosage: 70 MG,; 35 MG,
  2. ANTIHISTAMINES [Concomitant]
  3. ACETAMINOPHEN [Concomitant]
  4. ERYTHROPOIETIN (ERYTHROPOIETIN) [Concomitant]
  5. SEVELAMER (SEVELAMER) [Concomitant]
  6. CALCIUM CARBONATE (CALCIUM CARBONATE) [Concomitant]
  7. DILTIAZEM [Concomitant]
  8. ASPIRIN [Concomitant]

REACTIONS (3)
  - LARYNGOSPASM [None]
  - PRURITUS [None]
  - TACHYCARDIA [None]
